FAERS Safety Report 22352825 (Version 2)
Quarter: 2024Q1

REPORT INFORMATION
  Report Type: Report from Study
  Country: CA (occurrence: CA)
  Receive Date: 20230523
  Receipt Date: 20240315
  Transmission Date: 20240410
  Serious: Yes (Hospitalization)
  Sender: FDA-Public Use
  Company Number: CA-ABBVIE-4729457

PATIENT
  Sex: Male

DRUGS (3)
  1. LUPRON [Suspect]
     Active Substance: LEUPROLIDE ACETATE
     Indication: Prostate cancer
     Route: 030
     Dates: start: 20230315
  2. LUPRON [Suspect]
     Active Substance: LEUPROLIDE ACETATE
     Route: 030
  3. ELIGARD [Concomitant]
     Active Substance: LEUPROLIDE ACETATE
     Indication: Product used for unknown indication

REACTIONS (10)
  - Haemoglobin decreased [Unknown]
  - Renal function test abnormal [Unknown]
  - Product dispensing error [Unknown]
  - Muscular weakness [Not Recovered/Not Resolved]
  - Product prescribing issue [Unknown]
  - Dizziness [Recovered/Resolved]
  - Glycosylated haemoglobin abnormal [Unknown]
  - Hospitalisation [Recovered/Resolved with Sequelae]
  - Dizziness [Unknown]
  - Haemorrhage [Unknown]

NARRATIVE: CASE EVENT DATE: 20230101
